FAERS Safety Report 9261928 (Version 2)
Quarter: 2013Q2

REPORT INFORMATION
  Report Type: Spontaneous
  Country: CA (occurrence: CA)
  Receive Date: 20130429
  Receipt Date: 20130430
  Transmission Date: 20140414
  Serious: Yes (Death, Life-Threatening)
  Sender: FDA-Public Use
  Company Number: CA-009507513-1304CAN017019

PATIENT
  Sex: Female

DRUGS (2)
  1. EMEND [Suspect]
     Indication: PRODUCT USED FOR UNKNOWN INDICATION
  2. TRABECTEDIN [Suspect]

REACTIONS (1)
  - Death [Fatal]
